FAERS Safety Report 7145341-2 (Version None)
Quarter: 2010Q4

REPORT INFORMATION
  Report Type: 
  Country: None (occurrence: None)
  Receive Date: 20101208
  Receipt Date: 20101130
  Transmission Date: 20110411
  Serious: Yes (Death, Life-Threatening)
  Sender: FDA-Public Use
  Company Number: TR-NOVOPROD-319447

PATIENT

DRUGS (1)
  1. NOVOSEVEN [Suspect]
     Indication: HAEMOPHILIA

REACTIONS (1)
  - DEATH [None]
